FAERS Safety Report 12790823 (Version 1)
Quarter: 2016Q3

REPORT INFORMATION
  Report Type: Spontaneous
  Country: US (occurrence: US)
  Receive Date: 20160929
  Receipt Date: 20160929
  Transmission Date: 20161109
  Serious: Yes (Hospitalization)
  Sender: FDA-Public Use
  Company Number: US-AXELLIA-000988

PATIENT
  Age: 51 Year
  Sex: Male

DRUGS (1)
  1. VANCOMYCIN [Suspect]
     Active Substance: VANCOMYCIN
     Indication: CLOSTRIDIUM DIFFICILE INFECTION
     Route: 048

REACTIONS (4)
  - Dyspnoea [Unknown]
  - Rash maculo-papular [Unknown]
  - Pruritus [Unknown]
  - Hypersensitivity [Unknown]
